FAERS Safety Report 5849185-0 (Version None)
Quarter: 2008Q3

REPORT INFORMATION
  Report Type: 
  Country: None (occurrence: None)
  Receive Date: 20080818
  Receipt Date: 20080818
  Transmission Date: 20090109
  Serious: Yes (Death)
  Sender: FDA-Public Use
  Company Number: None

PATIENT
  Sex: Female
  Weight: 48.2 kg

DRUGS (2)
  1. CELEBREX [Suspect]
     Indication: OVARIAN CANCER
     Dosage: 400 MG BID PO
     Route: 048
     Dates: start: 20080619, end: 20080628
  2. CYTOXAN [Suspect]
     Indication: OVARIAN CANCER
     Dosage: 50 MG DAILY PO
     Route: 048
     Dates: start: 20080619, end: 20080628

REACTIONS (4)
  - MALIGNANT NEOPLASM PROGRESSION [None]
  - NAUSEA [None]
  - OVARIAN CANCER METASTATIC [None]
  - VOMITING [None]
